FAERS Safety Report 9656746 (Version 1)
Quarter: 2013Q4

REPORT INFORMATION
  Report Type: Spontaneous
  Country: CN (occurrence: CN)
  Receive Date: 20131030
  Receipt Date: 20131030
  Transmission Date: 20140711
  Serious: Yes (Life-Threatening)
  Sender: FDA-Public Use
  Company Number: CN-BAYER-2013-131621

PATIENT
  Age: 62 Year
  Sex: Female
  Weight: 48 kg

DRUGS (1)
  1. IOPROMIDE [Suspect]
     Indication: COMPUTERISED TOMOGRAM HEAD
     Dosage: 15 ML
     Route: 042
     Dates: start: 20120715, end: 20120715

REACTIONS (1)
  - Apnoea [Recovered/Resolved]
